FAERS Safety Report 4650259-0 (Version None)
Quarter: 2005Q2

REPORT INFORMATION
  Report Type: 
  Country: None (occurrence: None)
  Receive Date: 20050428
  Receipt Date: 20050420
  Transmission Date: 20051028
  Serious: Yes (Hospitalization)
  Sender: FDA-Public Use
  Company Number: 200510808BWH

PATIENT
  Age: 57 Year
  Sex: Female

DRUGS (14)
  1. AVELOX [Suspect]
     Indication: BRONCHITIS
     Dates: start: 20050321
  2. ESTRACE [Concomitant]
  3. LIPITOR [Concomitant]
  4. NASACORT [Concomitant]
  5. NAPROSYN [Concomitant]
  6. TIAZAC [Concomitant]
  7. COUMADIN [Concomitant]
  8. LASIX [Concomitant]
  9. NASONEX [Concomitant]
  10. TOPROL-XL [Concomitant]
  11. LISINOPRIL [Concomitant]
  12. PREDNISONE TAB [Concomitant]
  13. HUMIBID LA [Concomitant]
  14. COMBIVENT [Concomitant]

REACTIONS (2)
  - ABDOMINAL HAEMATOMA [None]
  - ABDOMINAL PAIN [None]
